FAERS Safety Report 16419190 (Version 1)
Quarter: 2019Q2

REPORT INFORMATION
  Report Type: Spontaneous
  Country: CA (occurrence: CA)
  Receive Date: 20190612
  Receipt Date: 20190612
  Transmission Date: 20190711
  Serious: Yes (Hospitalization, Other)
  Sender: FDA-Public Use
  Company Number: CA-ROCHE-2335241

PATIENT
  Sex: Female

DRUGS (4)
  1. ARIPIPRAZOLE. [Suspect]
     Active Substance: ARIPIPRAZOLE
     Route: 030
  2. CLONAZEPAM. [Suspect]
     Active Substance: CLONAZEPAM
     Indication: PRODUCT USED FOR UNKNOWN INDICATION
     Route: 048
  3. ARIPIPRAZOLE. [Suspect]
     Active Substance: ARIPIPRAZOLE
     Indication: SCHIZOPHRENIA
     Route: 030
     Dates: start: 20170502
  4. CLONAZEPAM. [Suspect]
     Active Substance: CLONAZEPAM
     Route: 048

REACTIONS (19)
  - Intervertebral disc protrusion [Unknown]
  - Mental disorder [Unknown]
  - Cast application [Unknown]
  - Thrombosis [Not Recovered/Not Resolved]
  - Road traffic accident [Unknown]
  - Balance disorder [Unknown]
  - Cystitis [Recovered/Resolved]
  - Nervousness [Unknown]
  - Malaise [Unknown]
  - Blood pressure increased [Not Recovered/Not Resolved]
  - Loss of personal independence in daily activities [Unknown]
  - Back pain [Unknown]
  - Nasopharyngitis [Unknown]
  - Blood pressure diastolic increased [Unknown]
  - Prescribed underdose [Unknown]
  - Peripheral swelling [Not Recovered/Not Resolved]
  - Asthenia [Unknown]
  - Chest pain [Unknown]
  - Anxiety [Unknown]
